FAERS Safety Report 6050875-8 (Version None)
Quarter: 2009Q1

REPORT INFORMATION
  Report Type: 
  Country: None (occurrence: None)
  Receive Date: 20090126
  Receipt Date: 20080822
  Transmission Date: 20090719
  Serious: No
  Sender: FDA-Public Use
  Company Number: US-ABBOTT-08P-163-0471938-00

PATIENT
  Sex: Female

DRUGS (9)
  1. TRICOR [Suspect]
     Indication: DRUG USE FOR UNKNOWN INDICATION
     Route: 048
     Dates: start: 20080501, end: 20080501
  2. TRICOR [Suspect]
     Dosage: TRICOR
     Route: 048
     Dates: start: 20080501, end: 20080501
  3. MELOXICAM [Suspect]
     Indication: ARTHRALGIA
     Dates: start: 20080501, end: 20080501
  4. DOZOL [Suspect]
     Indication: INSOMNIA
     Route: 048
     Dates: start: 20080501, end: 20080501
  5. HYDROCHLOROTHIAZIDE [Concomitant]
     Indication: BLOOD PRESSURE
  6. MVT COMPLEX [Concomitant]
     Indication: DRUG USE FOR UNKNOWN INDICATION
  7. HERBAL MOOD AGENT [Concomitant]
     Indication: DRUG USE FOR UNKNOWN INDICATION
  8. SUPER B COMPLEX [Concomitant]
     Indication: DRUG USE FOR UNKNOWN INDICATION
  9. SIMCOR [Concomitant]
     Indication: BLOOD CHOLESTEROL INCREASED
     Dosage: 500/20 DAILY AT HS
     Dates: start: 20080731

REACTIONS (9)
  - ABASIA [None]
  - ABDOMINAL PAIN UPPER [None]
  - ARTHRALGIA [None]
  - FEELING ABNORMAL [None]
  - INSOMNIA [None]
  - LIP SWELLING [None]
  - PHARYNGEAL OEDEMA [None]
  - SKIN DISORDER [None]
  - SWOLLEN TONGUE [None]
